FAERS Safety Report 8036895-2 (Version None)
Quarter: 2012Q1

REPORT INFORMATION
  Report Type: 
  Country: None (occurrence: None)
  Receive Date: 20120111
  Receipt Date: 20120106
  Transmission Date: 20120608
  Serious: No
  Sender: FDA-Public Use
  Company Number: US-PFIZER INC-2012004584

PATIENT
  Sex: Female
  Weight: 73 kg

DRUGS (7)
  1. GABAPENTIN [Suspect]
     Indication: MIGRAINE
     Dosage: 200 MG, 3X/DAY
     Dates: start: 20080101
  2. NARATRIPTAN [Concomitant]
     Indication: MIGRAINE
     Dosage: 2.5 MG, UNK
  3. GABAPENTIN [Suspect]
     Indication: PAIN
     Dosage: 300 MG, 3X/DAY
  4. ATENOLOL [Concomitant]
     Indication: MIGRAINE
     Dosage: UNK
  5. GABAPENTIN [Suspect]
     Dosage: 600 MG, 1X/DAY
     Dates: start: 20111210, end: 20111224
  6. GABAPENTIN [Suspect]
     Dosage: 600 MG, 3X/DAY
     Dates: end: 20111125
  7. GABAPENTIN [Suspect]
     Dosage: 600 MG, 2X/DAY
     Dates: start: 20111126, end: 20111209

REACTIONS (11)
  - WITHDRAWAL SYNDROME [None]
  - DISORIENTATION [None]
  - MYALGIA [None]
  - DRUG INEFFECTIVE FOR UNAPPROVED INDICATION [None]
  - INFLUENZA [None]
  - INSOMNIA [None]
  - ASTHENIA [None]
  - IMMUNE SYSTEM DISORDER [None]
  - SPEECH DISORDER [None]
  - ARTHRALGIA [None]
  - FATIGUE [None]
